FAERS Safety Report 15315575 (Version 1)
Quarter: 2018Q3

REPORT INFORMATION
  Report Type: Spontaneous
  Country: US (occurrence: US)
  Receive Date: 20180815
  Receipt Date: 20180815
  Transmission Date: 20181010
  Serious: Yes (Other)
  Sender: FDA-Public Use
  Company Number: None

PATIENT
  Age: 86 Year
  Sex: Female

DRUGS (3)
  1. SCULPTRA [Concomitant]
     Active Substance: POLYLACTIDE, L-
  2. STERILE WATER [Concomitant]
     Active Substance: WATER
  3. XYLOCAINE [Suspect]
     Active Substance: LIDOCAINE HYDROCHLORIDE
     Indication: PAIN

REACTIONS (8)
  - Inflammation [None]
  - Tenderness [None]
  - Product quality issue [None]
  - Enterobacter test positive [None]
  - Product contamination microbial [None]
  - Pain in jaw [None]
  - Feeling hot [None]
  - Erythema [None]

NARRATIVE: CASE EVENT DATE: 20180719
